FAERS Safety Report 4943261-2 (Version None)
Quarter: 2006Q1

REPORT INFORMATION
  Report Type: 
  Country: None (occurrence: None)
  Receive Date: 20060314
  Receipt Date: 20051114
  Transmission Date: 20060701
  Serious: Yes (Hospitalization, Other)
  Sender: FDA-Public Use
  Company Number: US-MERCK-0511USA02227

PATIENT
  Age: 66 Year
  Sex: Male
  Weight: 91 kg

DRUGS (20)
  1. VIOXX [Suspect]
     Indication: ARTHRITIS
     Route: 048
     Dates: start: 20020501, end: 20040930
  2. VIOXX [Suspect]
     Indication: PAIN
     Route: 048
     Dates: start: 20020501, end: 20040930
  3. AMBIEN [Concomitant]
     Indication: INSOMNIA
     Route: 065
  4. METHOTREXATE [Concomitant]
     Indication: ARTHRITIS
     Route: 065
  5. FOLIC ACID [Concomitant]
     Indication: CARDIAC DISORDER
     Route: 065
  6. GLUCOTROL [Concomitant]
     Indication: DIABETES MELLITUS
     Route: 065
  7. ZOCOR [Concomitant]
     Indication: BLOOD CHOLESTEROL INCREASED
     Route: 065
     Dates: start: 20030301, end: 20040701
  8. COUMADIN [Concomitant]
     Indication: CARDIOVASCULAR DISORDER
     Route: 065
     Dates: start: 20020101
  9. PREVACID [Concomitant]
     Indication: GASTRIC DISORDER
     Route: 065
  10. LANOXIN [Concomitant]
     Indication: ATRIAL FIBRILLATION
     Route: 065
     Dates: start: 20020101
  11. METOPROLOL [Concomitant]
     Indication: CARDIAC DISORDER
     Route: 065
     Dates: start: 20020101
  12. VIAGRA [Concomitant]
     Indication: ERECTILE DYSFUNCTION
     Route: 065
  13. COZAAR [Concomitant]
     Indication: CARDIAC DISORDER
     Route: 065
     Dates: start: 20020101
  14. ACEON [Concomitant]
     Indication: HYPERTENSION
     Route: 065
     Dates: start: 20020101
  15. ZETIA [Concomitant]
     Indication: BLOOD CHOLESTEROL INCREASED
     Route: 065
     Dates: start: 20040801, end: 20041124
  16. ACETAMINOPHEN AND CODEINE [Concomitant]
     Indication: PAIN
     Route: 065
     Dates: start: 20040501
  17. GLUCOPHAGE [Concomitant]
     Indication: DIABETES MELLITUS
     Route: 065
  18. TRIMOX [Concomitant]
     Indication: BACTERIAL INFECTION
     Route: 065
  19. FLONASE [Concomitant]
     Indication: HYPERSENSITIVITY
     Route: 065
  20. NAPROXEN [Concomitant]
     Indication: PAIN
     Route: 065

REACTIONS (5)
  - BLOOD CHOLESTEROL INCREASED [None]
  - CEREBROVASCULAR ACCIDENT [None]
  - HYPERTENSION [None]
  - INJURY [None]
  - TRANSIENT ISCHAEMIC ATTACK [None]
